FAERS Safety Report 19987556 (Version 5)
Quarter: 2021Q4

REPORT INFORMATION
  Report Type: Report from Study
  Country: CN (occurrence: CN)
  Receive Date: 20211022
  Receipt Date: 20211230
  Transmission Date: 20220303
  Serious: Yes (Hospitalization, Other)
  Sender: FDA-Public Use
  Company Number: CN-TAKEDA-2021TUS064703

PATIENT
  Age: 74 Year
  Sex: Female
  Weight: 54 kg

DRUGS (15)
  1. IXAZOMIB [Suspect]
     Active Substance: IXAZOMIB
     Indication: Plasma cell myeloma
     Dosage: UNK
     Route: 065
  2. DEXAMETHASONE [Suspect]
     Active Substance: DEXAMETHASONE
     Indication: Plasma cell myeloma
     Dosage: 10 MILLIGRAM, QD
     Route: 042
     Dates: start: 20210803
  3. DEXAMETHASONE [Suspect]
     Active Substance: DEXAMETHASONE
     Dosage: 20 MILLIGRAM, QD
     Route: 042
     Dates: start: 20210915, end: 20210916
  4. CYCLOPHOSPHAMIDE [Suspect]
     Active Substance: CYCLOPHOSPHAMIDE
     Indication: Plasma cell myeloma
     Dosage: 0.2 GRAM, QD
     Route: 042
     Dates: start: 20210804
  5. CYCLOPHOSPHAMIDE [Suspect]
     Active Substance: CYCLOPHOSPHAMIDE
     Dosage: 0.5 GRAM, QD
     Route: 042
     Dates: start: 20210915, end: 20210916
  6. Calcii Dibutyry Ladenosini Cyclophosphas [Concomitant]
     Indication: Nutritional supplementation
     Dosage: 40 MILLIGRAM, QD
     Route: 042
     Dates: start: 20210915, end: 20210917
  7. TIOPRONIN SODIUM [Concomitant]
     Indication: Prophylaxis
     Dosage: 0.2 GRAM, QD
     Route: 042
     Dates: start: 20210915, end: 20210917
  8. METHYLCOBALAMIN [Concomitant]
     Active Substance: METHYLCOBALAMIN
     Indication: Nutritional supplementation
     Dosage: 0.5 MILLIGRAM, TID
     Route: 048
     Dates: start: 20210915, end: 20210917
  9. PANTOPRAZOLE [Concomitant]
     Active Substance: PANTOPRAZOLE
     Indication: Prophylaxis
     Dosage: 40 MILLIGRAM, QD
     Route: 048
     Dates: start: 20210915, end: 20210917
  10. UBENIMEX [Concomitant]
     Active Substance: UBENIMEX
     Indication: Immune enhancement therapy
     Dosage: 10 MILLIGRAM, TID
     Route: 048
     Dates: start: 20210915, end: 20210917
  11. PROTEIN HYDROLYSATE [Concomitant]
     Active Substance: PROTEIN HYDROLYSATE
     Indication: Immune enhancement therapy
     Dosage: 20 MILLILITER, TID
     Route: 048
     Dates: start: 20210915, end: 20210917
  12. METOCLOPRAMIDE [Concomitant]
     Active Substance: METOCLOPRAMIDE
     Indication: Prophylaxis of nausea and vomiting
     Dosage: 10 MILLIGRAM, QD
     Route: 042
     Dates: start: 20210916, end: 20210916
  13. ONDANSETRON [Concomitant]
     Active Substance: ONDANSETRON
     Indication: Vomiting
     Dosage: 8 MILLIGRAM, QD
     Route: 042
     Dates: start: 20210916, end: 20210916
  14. DENOSUMAB [Concomitant]
     Active Substance: DENOSUMAB
     Indication: Plasma cell myeloma
     Dosage: 120 MILLIGRAM, QD
     Route: 058
     Dates: start: 20210916, end: 20210916
  15. ONDANSETRON HYDROCHLORIDE [Concomitant]
     Active Substance: ONDANSETRON HYDROCHLORIDE
     Indication: Vomiting
     Dosage: 4 MILLIGRAM, QD
     Route: 048
     Dates: start: 20210916, end: 20210917

REACTIONS (2)
  - Pneumonia [Recovered/Resolved]
  - Vomiting [Recovered/Resolved]

NARRATIVE: CASE EVENT DATE: 20210917
